FAERS Safety Report 19456826 (Version 1)
Quarter: 2021Q2

REPORT INFORMATION
  Report Type: Spontaneous
  Country: US (occurrence: US)
  Receive Date: 20210624
  Receipt Date: 20210624
  Transmission Date: 20210717
  Serious: No
  Sender: FDA-Public Use
  Company Number: US-LUPIN PHARMACEUTICALS INC.-2021-09798

PATIENT
  Age: 69 Year
  Sex: Male

DRUGS (2)
  1. CLOBETASOL [Suspect]
     Active Substance: CLOBETASOL
     Dosage: UNK, TWICE A WEEK
     Route: 061
  2. CLOBETASOL [Suspect]
     Active Substance: CLOBETASOL
     Indication: CUTANEOUS T-CELL LYMPHOMA
     Dosage: UNK UNK, QD
     Route: 061

REACTIONS (2)
  - Petechiae [Unknown]
  - Skin hypopigmentation [Unknown]
